FAERS Safety Report 4883817-9 (Version None)
Quarter: 2006Q1

REPORT INFORMATION
  Report Type: 
  Country: None (occurrence: None)
  Receive Date: 20060113
  Receipt Date: 20051205
  Transmission Date: 20060701
  Serious: Yes (Death)
  Sender: FDA-Public Use
  Company Number: US200512000834

PATIENT
  Age: 70 Year
  Sex: Male

DRUGS (1)
  1. ZYPREXA [Suspect]
     Dosage: 5 MG, 2/D, UNK
     Route: 065
     Dates: start: 20040101, end: 20040101

REACTIONS (1)
  - PROSTATIC OPERATION [None]
